FAERS Safety Report 10240578 (Version 1)
Quarter: 2014Q1

REPORT INFORMATION
  Report Type: Spontaneous
  Country: US (occurrence: None)
  Receive Date: 20140306
  Receipt Date: 20140306
  Transmission Date: 20141002
  Serious: Yes (Hospitalization)
  Sender: FDA-Public Use
  Company Number: 163-21880-13034033

PATIENT
  Age: 70 Year
  Sex: Female

DRUGS (2)
  1. REVLIMID [Suspect]
     Indication: PLASMA CELL MYELOMA
     Route: 048
     Dates: start: 201205
  2. DEXAMETHASONE (DEXAMETHASONE) [Concomitant]

REACTIONS (3)
  - Dyspnoea [None]
  - Oedema peripheral [None]
  - Plasma cell myeloma [None]
